FAERS Safety Report 10088269 (Version 1)
Quarter: 2014Q2

REPORT INFORMATION
  Report Type: Spontaneous
  Country: CN (occurrence: CN)
  Receive Date: 20140421
  Receipt Date: 20140421
  Transmission Date: 20141212
  Serious: Yes (Disabling, Other)
  Sender: FDA-Public Use
  Company Number: CN-ROCHE-1383334

PATIENT
  Age: 63 Year
  Sex: Male

DRUGS (1)
  1. CEFTRIAXONE SODIUM [Suspect]
     Indication: ASTHMA
     Route: 041
     Dates: start: 20130118

REACTIONS (2)
  - Apallic syndrome [Unknown]
  - Dyspnoea [Unknown]
